FAERS Safety Report 9382382 (Version 2)
Quarter: 2013Q3

REPORT INFORMATION
  Report Type: Spontaneous
  Country: IT (occurrence: IT)
  Receive Date: 20130703
  Receipt Date: 20130827
  Transmission Date: 20140515
  Serious: Yes (Hospitalization)
  Sender: FDA-Public Use
  Company Number: IT-BRISTOL-MYERS SQUIBB COMPANY-19063155

PATIENT
  Age: 75 Year
  Sex: Female

DRUGS (6)
  1. COUMADIN TABS 5 MG [Suspect]
     Indication: ATRIAL FIBRILLATION
     Dosage: 1DF:1UNIT/DAY?LAST DOSE:11JUN2013
     Dates: start: 20090101
  2. PANTOPRAZOLE SODIUM [Concomitant]
  3. FUROSEMIDE [Concomitant]
  4. LASITONE [Concomitant]
     Dosage: 1DF:25+37 MG CAPS
  5. REVATIO [Concomitant]
     Dosage: TABS
  6. LANOXIN [Concomitant]
     Dosage: TABS
     Dates: start: 20121101, end: 20130611

REACTIONS (2)
  - Anaemia [Recovering/Resolving]
  - Melaena [Recovering/Resolving]
